FAERS Safety Report 12119292 (Version 3)
Quarter: 2016Q1

REPORT INFORMATION
  Report Type: Spontaneous
  Country: US (occurrence: US)
  Receive Date: 20160226
  Receipt Date: 20160331
  Transmission Date: 20160526
  Serious: Yes (Hospitalization, Other)
  Sender: FDA-Public Use
  Company Number: US-GLAXOSMITHKLINE-US2016026666

PATIENT
  Age: 74 Year
  Sex: Female

DRUGS (7)
  1. ADVAIR DISKUS [Suspect]
     Active Substance: FLUTICASONE PROPIONATE\SALMETEROL XINAFOATE
     Dosage: UNK
  2. DOXYCYCLINE. [Concomitant]
     Active Substance: DOXYCYCLINE
  3. VENTOLIN HFA [Suspect]
     Active Substance: ALBUTEROL SULFATE
     Dosage: UNK
  4. CLONAZEPAM. [Concomitant]
     Active Substance: CLONAZEPAM
  5. ADVAIR DISKUS [Suspect]
     Active Substance: FLUTICASONE PROPIONATE\SALMETEROL XINAFOATE
     Indication: ASTHMA
     Dosage: 2 PUFF(S), BID
     Route: 055
     Dates: start: 2008
  6. SERTRALINE [Concomitant]
     Active Substance: SERTRALINE HYDROCHLORIDE
  7. VENTOLIN HFA [Suspect]
     Active Substance: ALBUTEROL SULFATE
     Indication: ASTHMA
     Dosage: 2 PUFF(S), BID
     Route: 055
     Dates: start: 2008

REACTIONS (3)
  - Inappropriate schedule of drug administration [Unknown]
  - Infection [Unknown]
  - Knee arthroplasty [Unknown]

NARRATIVE: CASE EVENT DATE: 2008
